FAERS Safety Report 8251928-6 (Version None)
Quarter: 2012Q2

REPORT INFORMATION
  Report Type: 
  Country: None (occurrence: None)
  Receive Date: 20120402
  Receipt Date: 20120327
  Transmission Date: 20120825
  Serious: No
  Sender: FDA-Public Use
  Company Number: US-PFIZER INC-2012078952

PATIENT
  Sex: Female
  Weight: 46.712 kg

DRUGS (4)
  1. ZOLOFT [Suspect]
     Dosage: 100 MG, 1X/DAY
     Route: 048
  2. ZOLOFT [Suspect]
     Dosage: SPLITTING THE 100MG TABLETS INTO HALF SO AS TO TAKE 50MG
     Dates: start: 20120305
  3. ZOLOFT [Suspect]
     Indication: DEPRESSION
     Dosage: 50 MG, 1X/DAY
     Route: 048
  4. ESTRACE [Concomitant]
     Indication: HORMONE REPLACEMENT THERAPY
     Dosage: 1 MG, DAILY
     Route: 048

REACTIONS (2)
  - ANAEMIA [None]
  - SENSORY DISTURBANCE [None]
